FAERS Safety Report 23586864 (Version 1)
Quarter: 2024Q1

REPORT INFORMATION
  Report Type: Spontaneous
  Country: US (occurrence: US)
  Receive Date: 20240301
  Receipt Date: 20240301
  Transmission Date: 20240409
  Serious: No
  Sender: FDA-Public Use
  Company Number: US-PFIZER INC-202101313760

PATIENT
  Age: 58 Year
  Sex: Female

DRUGS (3)
  1. LORBRENA [Suspect]
     Active Substance: LORLATINIB
     Indication: Lung neoplasm malignant
     Dosage: 75 MG
  2. LORBRENA [Suspect]
     Active Substance: LORLATINIB
     Dosage: 50 MG
  3. LORBRENA [Suspect]
     Active Substance: LORLATINIB
     Dosage: 25 MG

REACTIONS (2)
  - Illness [Unknown]
  - Intentional product misuse [Unknown]
